FAERS Safety Report 15159892 (Version 1)
Quarter: 2018Q3

REPORT INFORMATION
  Report Type: Spontaneous
  Country: FR (occurrence: FR)
  Receive Date: 20180718
  Receipt Date: 20180718
  Transmission Date: 20181010
  Serious: Yes (Death)
  Sender: FDA-Public Use
  Company Number: FR-SA-2018SA167567

PATIENT
  Age: 73 Year
  Sex: Male
  Weight: 86 kg

DRUGS (8)
  1. OXALIPLATIN. [Suspect]
     Active Substance: OXALIPLATIN
     Dosage: UNK UNK, UNK
     Route: 042
     Dates: start: 20170926, end: 20170926
  2. PARACETAMOL [Concomitant]
     Active Substance: ACETAMINOPHEN
     Dosage: 3 G, QD
     Route: 048
     Dates: start: 20170921
  3. FLUOROURACILE [Suspect]
     Active Substance: FLUOROURACIL
     Indication: COLON CANCER
     Dosage: UNK UNK, UNK
     Route: 042
     Dates: start: 20170926, end: 20170926
  4. SOLUPRED [PREDNISOLONE METASULFOBENZOATE SODIUM] [Concomitant]
     Dosage: 1 DF, QD
     Route: 048
     Dates: start: 20100921
  5. ORAMORPH [Concomitant]
     Active Substance: MORPHINE SULFATE
     Dosage: 6 DROP, QD
     Route: 048
     Dates: start: 20170921
  6. DIFFU K [Concomitant]
     Active Substance: POTASSIUM CHLORIDE
     Dosage: 2 DF, QD
     Route: 048
     Dates: start: 20170921
  7. FOLIC ACID. [Suspect]
     Active Substance: FOLIC ACID
     Indication: COLON CANCER
     Dosage: UNK UNK, UNK
     Route: 042
     Dates: start: 20170926, end: 20170926
  8. SERESTA [Concomitant]
     Active Substance: OXAZEPAM
     Dosage: 1 DF, QD
     Route: 048
     Dates: start: 20170921

REACTIONS (4)
  - Hypoxia [Fatal]
  - General physical health deterioration [Fatal]
  - Decreased appetite [Fatal]
  - Asthenia [Fatal]

NARRATIVE: CASE EVENT DATE: 20171008
